FAERS Safety Report 7094502-X (Version None)
Quarter: 2010Q4

REPORT INFORMATION
  Report Type: 
  Country: None (occurrence: None)
  Receive Date: 20101110
  Receipt Date: 20101104
  Transmission Date: 20110411
  Serious: Yes (Death, Hospitalization)
  Sender: FDA-Public Use
  Company Number: PHHY2010US74454

PATIENT
  Sex: Male
  Weight: 62 kg

DRUGS (1)
  1. EXJADE [Suspect]
     Indication: SICKLE CELL ANAEMIA
     Dosage: 1500 MG/ DAILY
     Route: 048
     Dates: start: 20091125, end: 20100730

REACTIONS (2)
  - ACUTE CHEST SYNDROME [None]
  - CEREBROVASCULAR ACCIDENT [None]
